FAERS Safety Report 7684919-4 (Version None)
Quarter: 2011Q3

REPORT INFORMATION
  Report Type: 
  Country: None (occurrence: None)
  Receive Date: 20110810
  Receipt Date: 20110726
  Transmission Date: 20111222
  Serious: Yes (Life-Threatening, Other)
  Sender: FDA-Public Use
  Company Number: LMI-2011-00610

PATIENT

DRUGS (2)
  1. LEXISCAN [Suspect]
     Indication: SCAN MYOCARDIAL PERFUSION
     Dosage: INTRAVENOUS
     Route: 042
     Dates: start: 20110721, end: 20110721
  2. CARDIOLITE [Suspect]
     Indication: SCAN MYOCARDIAL PERFUSION
     Dosage: INTRAVENOUS
     Route: 042
     Dates: start: 20110721, end: 20110721

REACTIONS (3)
  - SYNCOPE [None]
  - CARDIAC ARREST [None]
  - BRADYCARDIA [None]
